FAERS Safety Report 7962729-8 (Version None)
Quarter: 2011Q4

REPORT INFORMATION
  Report Type: 
  Country: None (occurrence: None)
  Receive Date: 20111207
  Receipt Date: 20111128
  Transmission Date: 20120403
  Serious: Yes (Other)
  Sender: FDA-Public Use
  Company Number: PHEH2011US010315

PATIENT
  Age: 83 Year
  Sex: Female

DRUGS (9)
  1. METOPROLOL TARTRATE [Concomitant]
  2. TEKTURNA [Suspect]
     Dosage: 150 MG, DAILY
  3. ACETYLSALICYLIC ACID SRT [Concomitant]
  4. PANTOPRAZOLE [Concomitant]
  5. WARFARIN SODIUM [Suspect]
     Dosage: 2 MG, QW2
  6. HYDROCHLOROTHIAZIDE [Concomitant]
  7. CALCIUM WITH VITAMIN D [Concomitant]
  8. WARFARIN SODIUM [Suspect]
     Dosage: 7.5 MG, QW5
     Dates: start: 20090101
  9. POTASSIUM ACETATE [Concomitant]

REACTIONS (4)
  - HYPOTENSION [None]
  - HEART RATE INCREASED [None]
  - NAUSEA [None]
  - FATIGUE [None]
